FAERS Safety Report 7866204-0 (Version None)
Quarter: 2011Q4

REPORT INFORMATION
  Report Type: 
  Country: None (occurrence: None)
  Receive Date: 20111028
  Receipt Date: 20110511
  Transmission Date: 20120403
  Serious: No
  Sender: FDA-Public Use
  Company Number: US-GLAXOSMITHKLINE-A0927000A

PATIENT
  Age: 53 Year
  Sex: Female

DRUGS (16)
  1. ESTROGENIC SUBSTANCE [Concomitant]
  2. VITAMIN TAB [Concomitant]
  3. DIURETIC [Concomitant]
  4. CORZEN [Concomitant]
  5. VALIUM [Concomitant]
  6. FLEXERIL [Concomitant]
  7. HUMIRA [Concomitant]
  8. PROZAC [Concomitant]
  9. NEURONTIN [Concomitant]
  10. MORPHINE [Concomitant]
  11. OXYCODONE HCL [Concomitant]
  12. VENTOLIN HFA [Concomitant]
  13. LOVAZA [Concomitant]
  14. ADVAIR DISKUS 100/50 [Suspect]
     Indication: PRODUCT USED FOR UNKNOWN INDICATION
     Dosage: 1PUFF TWICE PER DAY
     Route: 055
     Dates: start: 20110315
  15. POTASSIUM CHLORIDE [Concomitant]
  16. PROTONIX [Concomitant]

REACTIONS (1)
  - DYSPHONIA [None]
